FAERS Safety Report 24864638 (Version 1)
Quarter: 2025Q1

REPORT INFORMATION
  Report Type: Spontaneous
  Country: FR (occurrence: FR)
  Receive Date: 20250120
  Receipt Date: 20250120
  Transmission Date: 20250408
  Serious: Yes (Hospitalization)
  Sender: ACCORD
  Company Number: None

PATIENT
  Age: 74 Year
  Sex: Male
  Weight: 72.6 kg

DRUGS (16)
  1. FUROSEMIDE [Suspect]
     Active Substance: FUROSEMIDE
     Indication: Cardiac failure
     Dates: start: 20240517
  2. FUROSEMIDE [Suspect]
     Active Substance: FUROSEMIDE
     Indication: Cardiac failure
     Dates: start: 20240511, end: 20240516
  3. EPLERENONE [Suspect]
     Active Substance: EPLERENONE
     Indication: Cardiac failure
     Dates: start: 20240512, end: 20240519
  4. SACUBITRIL\VALSARTAN [Suspect]
     Active Substance: SACUBITRIL\VALSARTAN
     Indication: Cardiac failure
     Dates: start: 20240512
  5. ELIQUIS [Concomitant]
     Active Substance: APIXABAN
  6. LANSOPRAZOLE [Concomitant]
     Active Substance: LANSOPRAZOLE
  7. NEBIVOLOL [Concomitant]
     Active Substance: NEBIVOLOL
  8. DAPAGLIFLOZIN [Concomitant]
     Active Substance: DAPAGLIFLOZIN
  9. ROSUVASTATIN [Concomitant]
     Active Substance: ROSUVASTATIN
  10. ALLOPURINOL [Concomitant]
     Active Substance: ALLOPURINOL
  11. SILODOSIN [Concomitant]
     Active Substance: SILODOSIN
  12. OXAZEPAM [Concomitant]
     Active Substance: OXAZEPAM
  13. CYANOCOBALAMIN\PYRIDOXINE HYDROCHLORIDE\THIAMINE [Concomitant]
     Active Substance: CYANOCOBALAMIN\PYRIDOXINE HYDROCHLORIDE\THIAMINE
  14. NIACINAMIDE [Concomitant]
     Active Substance: NIACINAMIDE
  15. POTASSIUM CHLORIDE [Concomitant]
     Active Substance: POTASSIUM CHLORIDE
  16. METFORMIN [Concomitant]
     Active Substance: METFORMIN HYDROCHLORIDE

REACTIONS (2)
  - Acute kidney injury [Recovered/Resolved]
  - Hyponatraemia [Recovered/Resolved]

NARRATIVE: CASE EVENT DATE: 20240519
